FAERS Safety Report 5031740-1 (Version None)
Quarter: 2006Q2

REPORT INFORMATION
  Report Type: 
  Country: None (occurrence: None)
  Receive Date: 20060616
  Receipt Date: 20060609
  Transmission Date: 20061013
  Serious: Yes (Death)
  Sender: FDA-Public Use
  Company Number: S06-USA-02235-01

PATIENT
  Age: 22 Year
  Sex: Female

DRUGS (1)
  1. LEXAPRO [Suspect]
     Indication: DEPRESSION

REACTIONS (2)
  - COMPLETED SUICIDE [None]
  - DRUG EXPOSURE DURING PREGNANCY [None]
